FAERS Safety Report 5076836-3 (Version None)
Quarter: 2006Q3

REPORT INFORMATION
  Report Type: 
  Country: None (occurrence: None)
  Receive Date: 20060807
  Receipt Date: 20060731
  Transmission Date: 20061208
  Serious: Yes (Hospitalization)
  Sender: FDA-Public Use
  Company Number: 2006BI009731

PATIENT
  Age: 75 Year
  Sex: Female
  Weight: 65.7716 kg

DRUGS (7)
  1. AVONEX [Suspect]
     Indication: MULTIPLE SCLEROSIS
     Dosage: 30 UG; QW; IM
     Route: 030
     Dates: start: 20031215
  2. AMANTADINE HCL [Concomitant]
  3. TIRAMTERENE/HCTZ [Concomitant]
  4. CYANCIROC [Concomitant]
  5. ZOCOR [Concomitant]
  6. PROPRANOLOL [Concomitant]
  7. ACTONEL [Concomitant]

REACTIONS (2)
  - DRY MOUTH [None]
  - THYROID DISORDER [None]
